FAERS Safety Report 7738168-1 (Version None)
Quarter: 2011Q3

REPORT INFORMATION
  Report Type: 
  Country: None (occurrence: None)
  Receive Date: 20110908
  Receipt Date: 20110906
  Transmission Date: 20111222
  Serious: Yes (Other)
  Sender: FDA-Public Use
  Company Number: US-PFIZER INC-2011209294

PATIENT
  Sex: Female
  Weight: 122.45 kg

DRUGS (10)
  1. GLUCOPHAGE [Concomitant]
     Indication: DIABETES MELLITUS
     Dosage: UNK
  2. PERCOCET [Concomitant]
     Indication: ARTHRALGIA
  3. TOVIAZ [Suspect]
     Indication: URINARY INCONTINENCE
     Dosage: 4 MG, 1X/DAY
     Route: 048
     Dates: start: 20110902, end: 20110903
  4. IBUPROFEN [Concomitant]
     Indication: BACK PAIN
     Dosage: UNK
  5. IBUPROFEN [Concomitant]
     Indication: ARTHRALGIA
  6. ALPRAZOLAM [Concomitant]
     Dosage: UNK
  7. LASIX [Concomitant]
     Dosage: UNK
  8. PERCOCET [Concomitant]
     Indication: NEURALGIA
  9. LYRICA [Concomitant]
     Indication: NEUROPATHY PERIPHERAL
     Dosage: UNK
  10. PERCOCET [Concomitant]
     Indication: BACK PAIN
     Dosage: UNK

REACTIONS (2)
  - BLINDNESS UNILATERAL [None]
  - VISION BLURRED [None]
